FAERS Safety Report 4688207-X (Version None)
Quarter: 2005Q2

REPORT INFORMATION
  Report Type: 
  Country: None (occurrence: None)
  Receive Date: 20050610
  Receipt Date: 20050426
  Transmission Date: 20051028
  Serious: Yes (Death, Life-Threatening)
  Sender: FDA-Public Use
  Company Number: BR-ABBOTT-05P-020-0298475-00

PATIENT
  Sex: Male
  Weight: 54 kg

DRUGS (3)
  1. RITONAVIR SOFT GELATIN CAPSULES [Suspect]
     Indication: HIV INFECTION
     Route: 048
     Dates: start: 20050321, end: 20050406
  2. STAVUDINE [Concomitant]
     Indication: DRUG USE FOR UNKNOWN INDICATION
     Dates: start: 20050321
  3. LAMIVUDINE [Concomitant]
     Indication: HIV INFECTION
     Route: 048
     Dates: start: 20050321

REACTIONS (3)
  - HERPES SIMPLEX [None]
  - MULTI-ORGAN FAILURE [None]
  - SEPTIC SHOCK [None]
